FAERS Safety Report 12976797 (Version 4)
Quarter: 2017Q1

REPORT INFORMATION
  Report Type: Spontaneous
  Country: GB (occurrence: GB)
  Receive Date: 20161128
  Receipt Date: 20170113
  Transmission Date: 20170428
  Serious: Yes (Hospitalization, Other)
  Sender: FDA-Public Use
  Company Number: PHHY2016GB160486

PATIENT
  Age: 35 Year
  Sex: Male

DRUGS (2)
  1. CICLOSPORIN [Suspect]
     Active Substance: CYCLOSPORINE
     Indication: EVANS SYNDROME
     Dosage: 200 MG, QD
     Route: 065
  2. ORLISTAT [Interacting]
     Active Substance: ORLISTAT
     Indication: OBESITY
     Dosage: UNK
     Route: 065

REACTIONS (6)
  - Disease recurrence [Recovered/Resolved]
  - Evans syndrome [Recovered/Resolved]
  - Drug interaction [Recovered/Resolved]
  - Dyspnoea [Recovered/Resolved]
  - Headache [Recovered/Resolved]
  - Jaundice [Recovered/Resolved]
